FAERS Safety Report 23426873 (Version 1)
Quarter: 2024Q1

REPORT INFORMATION
  Report Type: Spontaneous
  Country: US (occurrence: US)
  Receive Date: 20240122
  Receipt Date: 20240122
  Transmission Date: 20240409
  Serious: Yes (Other)
  Sender: FDA-Public Use
  Company Number: US-CHEPLA-2024000828

PATIENT
  Sex: Male

DRUGS (1)
  1. OLANZAPINE [Suspect]
     Active Substance: OLANZAPINE
     Dates: start: 1996, end: 2011

REACTIONS (3)
  - Type 2 diabetes mellitus [Unknown]
  - Amnesia [Unknown]
  - Peyronie^s disease [Unknown]

NARRATIVE: CASE EVENT DATE: 20180101
